FAERS Safety Report 12736850 (Version 2)
Quarter: 2016Q4

REPORT INFORMATION
  Report Type: Spontaneous
  Country: US (occurrence: US)
  Receive Date: 20160912
  Receipt Date: 20161012
  Transmission Date: 20170207
  Serious: No
  Sender: FDA-Public Use
  Company Number: US-PFIZER INC-2016423850

PATIENT
  Age: 57 Year
  Sex: Male

DRUGS (2)
  1. ADVIL MIGRAINE [Suspect]
     Active Substance: IBUPROFEN
     Dosage: 1 DF, 1X/DAY (AT NIGHT 9 PM)
     Dates: start: 20160910
  2. ADVIL MIGRAINE [Suspect]
     Active Substance: IBUPROFEN
     Indication: FATIGUE
     Dosage: 1 DF, 1X/DAY (AT NIGHT 9 PM)
     Dates: start: 20160903

REACTIONS (3)
  - Therapeutic response unexpected [Unknown]
  - Energy increased [Unknown]
  - Intentional product misuse [Unknown]

NARRATIVE: CASE EVENT DATE: 201609
